FAERS Safety Report 5646108-4 (Version None)
Quarter: 2008Q1

REPORT INFORMATION
  Report Type: 
  Country: None (occurrence: None)
  Receive Date: 20080227
  Receipt Date: 20080220
  Transmission Date: 20080703
  Serious: Yes (Death, Hospitalization)
  Sender: FDA-Public Use
  Company Number: D0056244A

PATIENT
  Age: 75 Year
  Sex: Female
  Weight: 74.8435 kg

DRUGS (8)
  1. ADVAIR DISKUS 100/50 [Suspect]
     Indication: CHRONIC OBSTRUCTIVE PULMONARY DISEASE
     Dosage: 2 UNIT / TWICE PER DAY / INHALED
     Route: 055
     Dates: start: 20071106
  2. THEOPHYLLINE [Concomitant]
  3. TIOTROPIUM [Concomitant]
  4. FORMOTEROL [Concomitant]
  5. BERODUAL [Concomitant]
  6. OXYGEN [Concomitant]
  7. CIPROFLOXACIN HCL [Concomitant]
  8. PREDNISOLONE [Concomitant]

REACTIONS (4)
  - CARDIAC ARREST [None]
  - CHRONIC OBSTRUCTIVE PULMONARY DISEASE [None]
  - LUNG INFECTION [None]
  - RESPIRATORY TRACT INFECTION [None]
